FAERS Safety Report 11856240 (Version 1)
Quarter: 2015Q4

REPORT INFORMATION
  Report Type: Spontaneous
  Country: GB (occurrence: GB)
  Receive Date: 20151221
  Receipt Date: 20151221
  Transmission Date: 20160305
  Serious: Yes (Hospitalization)
  Sender: FDA-Public Use
  Company Number: GB-PFIZER INC-2015446622

PATIENT
  Age: 33 Year
  Sex: Female

DRUGS (8)
  1. AMITRIPTYLINE [Concomitant]
     Active Substance: AMITRIPTYLINE
     Dosage: UNK
  2. ORAMORPH [Concomitant]
     Active Substance: MORPHINE SULFATE
     Dosage: UNK
  3. SERTRALINE [Concomitant]
     Active Substance: SERTRALINE HYDROCHLORIDE
     Dosage: UNK
  4. SULFASALAZINE. [Suspect]
     Active Substance: SULFASALAZINE
     Indication: RHEUMATOID ARTHRITIS
     Dosage: INITIAL 500 MG, DAILY FOR 1 WEEK
     Route: 048
     Dates: start: 20151006
  5. SULFASALAZINE. [Suspect]
     Active Substance: SULFASALAZINE
     Dosage: MAINTENANCE: 2000 MG, DAILY
     Route: 048
     Dates: end: 20151118
  6. SULFASALAZINE. [Suspect]
     Active Substance: SULFASALAZINE
     Dosage: INCREASING BY 500MG WEEKLY
     Route: 048
  7. FENTANYL. [Concomitant]
     Active Substance: FENTANYL
     Dosage: UNK
  8. RIZATRIPTAN. [Concomitant]
     Active Substance: RIZATRIPTAN
     Dosage: UNK

REACTIONS (3)
  - Acute hepatic failure [Not Recovered/Not Resolved]
  - Rash [Not Recovered/Not Resolved]
  - Hepatic encephalopathy [Not Recovered/Not Resolved]

NARRATIVE: CASE EVENT DATE: 20151013
